FAERS Safety Report 19488654 (Version 1)
Quarter: 2021Q3

REPORT INFORMATION
  Report Type: Spontaneous
  Country: FR (occurrence: FR)
  Receive Date: 20210703
  Receipt Date: 20210703
  Transmission Date: 20211014
  Serious: Yes (Other)
  Sender: FDA-Public Use
  Company Number: FR-TEVA-2021-FR-1927855

PATIENT
  Age: 58 Year
  Sex: Male
  Weight: 85 kg

DRUGS (12)
  1. LINEZOLIDE [Suspect]
     Active Substance: LINEZOLID
     Indication: LUNG DISORDER
     Dosage: 2 DF
     Dates: start: 20210415, end: 20210422
  2. LOVENOX [Suspect]
     Active Substance: ENOXAPARIN SODIUM
     Indication: THROMBOSIS PROPHYLAXIS
     Dosage: 4000 IU
     Route: 059
     Dates: start: 20210411
  3. PANTOPRAZOLE MYLAN [Suspect]
     Active Substance: PANTOPRAZOLE SODIUM
     Indication: GASTRITIS PROPHYLAXIS
     Dosage: 40 MG
     Dates: start: 20210410, end: 20210511
  4. INSULINE [Suspect]
     Active Substance: INSULIN NOS
     Indication: DIABETES MELLITUS
     Dates: start: 20210410
  5. MEROPENEM ARROW [Suspect]
     Active Substance: MEROPENEM
     Indication: LUNG DISORDER
     Dates: start: 20210415, end: 20210418
  6. MIDAZOLAM. [Suspect]
     Active Substance: MIDAZOLAM
     Indication: SEDATION
     Route: 042
     Dates: start: 20210411, end: 20210518
  7. FLUCORTAC 50 MICROGRAMMES, COMPRIME SECABLE [Suspect]
     Active Substance: FLUDROCORTISONE ACETATE
     Indication: PRODUCT USED FOR UNKNOWN INDICATION
     Dosage: 50 MG
     Route: 048
     Dates: start: 20210410, end: 20210416
  8. NORADRENALINE [Suspect]
     Active Substance: NOREPINEPHRINE
     Indication: PRODUCT USED FOR UNKNOWN INDICATION
     Dosage: 40 MG
     Dates: start: 20210410, end: 20210429
  9. SUFENTANIL MYLAN [Suspect]
     Active Substance: SUFENTANIL
     Indication: SEDATION
     Dosage: 250 MG
     Dates: start: 20210414, end: 20210417
  10. PHOSPHONEUROS, SOLUTION BUVABLE EN GOUTTES [Suspect]
     Active Substance: CALCIUM PHOSPHATE, DIBASIC, ANHYDROUS\MAGNESIUM GLYCEROPHOSPHATE\PHOSPHORIC ACID\SODIUM PHOSPHATE, DIBASIC
     Indication: BLOOD PHOSPHORUS
     Dosage: 26 DF
     Dates: start: 20210413
  11. SULFATE DE TERBUTALINE [Concomitant]
     Active Substance: TERBUTALINE SULFATE
  12. DUPHALAC [Suspect]
     Active Substance: LACTULOSE
     Indication: CONSTIPATION
     Dosage: ORAL POWDER OR FOR RECTAL SOLUTION IN A JAR , 3 DF
     Dates: start: 20210414, end: 20210509

REACTIONS (1)
  - Cholestasis [Not Recovered/Not Resolved]

NARRATIVE: CASE EVENT DATE: 20210418
